FAERS Safety Report 10751049 (Version 1)
Quarter: 2015Q1

REPORT INFORMATION
  Report Type: Spontaneous
  Country: US (occurrence: None)
  Receive Date: 20150129
  Receipt Date: 20150129
  Transmission Date: 20150721
  Serious: No
  Sender: FDA-Public Use
  Company Number: None

PATIENT
  Age: 50 Year
  Sex: Female

DRUGS (11)
  1. AMPYRA [Suspect]
     Active Substance: DALFAMPRIDINE
     Indication: MULTIPLE SCLEROSIS
     Route: 048
     Dates: start: 201005
  2. AMPYRA [Concomitant]
     Active Substance: DALFAMPRIDINE
  3. REBIF [Concomitant]
     Active Substance: INTERFERON BETA-1A
  4. HYDRALAZINE [Concomitant]
     Active Substance: HYDRALAZINE HYDROCHLORIDE
  5. LDOL [Concomitant]
  6. LISINOPRIL. [Concomitant]
     Active Substance: LISINOPRIL
  7. METOPROLOL [Concomitant]
     Active Substance: METOPROLOL
  8. BACLOFEN. [Concomitant]
     Active Substance: BACLOFEN
  9. OXYBUTYNIN [Concomitant]
     Active Substance: OXYBUTYNIN
  10. ASPIRIN. [Concomitant]
     Active Substance: ASPIRIN
  11. COLACE [Concomitant]
     Active Substance: DOCUSATE SODIUM

REACTIONS (1)
  - Urinary tract infection [None]

NARRATIVE: CASE EVENT DATE: 20130514
